FAERS Safety Report 24138495 (Version 2)
Quarter: 2024Q3

REPORT INFORMATION
  Report Type: Spontaneous
  Country: US (occurrence: US)
  Receive Date: 20240725
  Receipt Date: 20240730
  Transmission Date: 20241016
  Serious: No
  Sender: BIOGEN
  Company Number: US-BIOGEN-2024BI01275222

PATIENT
  Age: 33 Year
  Sex: Female

DRUGS (2)
  1. VUMERITY [Suspect]
     Active Substance: DIROXIMEL FUMARATE
     Indication: Multiple sclerosis
     Route: 050
     Dates: start: 20240605
  2. VUMERITY [Suspect]
     Active Substance: DIROXIMEL FUMARATE
     Route: 050
     Dates: start: 20240701

REACTIONS (3)
  - Abdominal discomfort [Not Recovered/Not Resolved]
  - Allergy to animal [Unknown]
  - Hordeolum [Unknown]

NARRATIVE: CASE EVENT DATE: 20240701
